FAERS Safety Report 14261122 (Version 1)
Quarter: 2017Q4

REPORT INFORMATION
  Report Type: Spontaneous
  Country: US (occurrence: US)
  Receive Date: 20171207
  Receipt Date: 20171207
  Transmission Date: 20180321
  Serious: Yes (Disabling)
  Sender: FDA-Public Use
  Company Number: None

PATIENT
  Age: 67 Year
  Sex: Male
  Weight: 78.75 kg

DRUGS (5)
  1. DOXYCYCLINE HYCLATE 50 MG CAP [Suspect]
     Active Substance: DOXYCYCLINE HYCLATE
     Indication: SEXUALLY TRANSMITTED DISEASE
     Dosage: ?          QUANTITY:90 CAPSULE(S);?
     Route: 048
  2. CLONIDINE. [Concomitant]
     Active Substance: CLONIDINE
  3. MULTIVITAMIN [Concomitant]
     Active Substance: VITAMINS
  4. NIACIN-AMIDE [Concomitant]
  5. LOW DOSE ASPIRIN [Concomitant]
     Active Substance: ASPIRIN

REACTIONS (2)
  - Skin disorder [None]
  - Product substitution issue [None]

NARRATIVE: CASE EVENT DATE: 20171111
